FAERS Safety Report 18492086 (Version 1)
Quarter: 2020Q4

REPORT INFORMATION
  Report Type: Spontaneous
  Country: US (occurrence: US)
  Receive Date: 20201111
  Receipt Date: 20201111
  Transmission Date: 20210114
  Serious: Yes (Life-Threatening, Hospitalization, Other)
  Sender: FDA-Public Use
  Company Number: US-SLATE RUN PHARMACEUTICALS-20US000322

PATIENT

DRUGS (4)
  1. AZITHROMYCIN USP [Suspect]
     Active Substance: AZITHROMYCIN
     Indication: PNEUMONIA
     Dosage: UNK
     Route: 065
  2. HYDROXYCHLOROQUINE [Suspect]
     Active Substance: HYDROXYCHLOROQUINE
     Indication: PNEUMONIA
     Dosage: UNK
     Route: 065
  3. AMBRISENTAN [Concomitant]
     Active Substance: AMBRISENTAN
     Indication: PULMONARY HYPERTENSION
     Dosage: UNK
     Route: 065
  4. TADALAFIL. [Concomitant]
     Active Substance: TADALAFIL
     Indication: PULMONARY HYPERTENSION
     Dosage: UNK
     Route: 065

REACTIONS (3)
  - Respiratory failure [Unknown]
  - COVID-19 pneumonia [Unknown]
  - Electrocardiogram QT prolonged [Unknown]
